FAERS Safety Report 6917034-5 (Version None)
Quarter: 2010Q3

REPORT INFORMATION
  Report Type: 
  Country: None (occurrence: None)
  Receive Date: 20100810
  Receipt Date: 20100803
  Transmission Date: 20110219
  Serious: Yes (Hospitalization)
  Sender: FDA-Public Use
  Company Number: A0873757A

PATIENT
  Age: 59 Year
  Sex: Male

DRUGS (5)
  1. EPZICOM [Suspect]
     Indication: HIV INFECTION
     Dosage: 1TAB PER DAY
     Route: 048
     Dates: start: 20100522
  2. NORVIR [Concomitant]
  3. UNKNOWN [Concomitant]
  4. ZERIT [Concomitant]
  5. REYATAZ [Concomitant]

REACTIONS (5)
  - ANAEMIA [None]
  - DIZZINESS POSTURAL [None]
  - FATIGUE [None]
  - HYPOTENSION [None]
  - SOMNOLENCE [None]
